FAERS Safety Report 23165535 (Version 1)
Quarter: 2023Q4

REPORT INFORMATION
  Report Type: Spontaneous
  Country: US (occurrence: US)
  Receive Date: 20231109
  Receipt Date: 20231109
  Transmission Date: 20240110
  Serious: Yes (Other)
  Sender: FDA-Public Use
  Company Number: US-002147023-NVSC2023US238856

PATIENT
  Age: 61 Year
  Sex: Female
  Weight: 42 kg

DRUGS (7)
  1. CLOFAZIMINE [Suspect]
     Active Substance: CLOFAZIMINE
     Indication: Mycobacterial infection
     Dosage: 100 MG, QD
     Route: 065
  2. CLOFAZIMINE [Suspect]
     Active Substance: CLOFAZIMINE
     Indication: Mycobacterial peritonitis
  3. CEFOXITIN [Suspect]
     Active Substance: CEFOXITIN SODIUM
     Indication: Product used for unknown indication
     Dosage: UNK
     Route: 065
  4. TIGECYCLINE [Suspect]
     Active Substance: TIGECYCLINE
     Indication: Product used for unknown indication
     Dosage: UNK
     Route: 065
  5. AMIKACIN [Concomitant]
     Active Substance: AMIKACIN
     Indication: Product used for unknown indication
     Dosage: UNK
     Route: 065
  6. RIFABUTIN [Concomitant]
     Active Substance: RIFABUTIN
     Indication: Product used for unknown indication
     Dosage: UNK
     Route: 065
  7. CLOFAZIMINE [Concomitant]
     Active Substance: CLOFAZIMINE
     Indication: Product used for unknown indication
     Dosage: UNK
     Route: 065

REACTIONS (3)
  - Drug reaction with eosinophilia and systemic symptoms [Unknown]
  - Gastric cancer [Unknown]
  - Gastric ulcer perforation [Unknown]
